FAERS Safety Report 6754996-3 (Version None)
Quarter: 2010Q2

REPORT INFORMATION
  Report Type: 
  Country: None (occurrence: None)
  Receive Date: 20100528
  Receipt Date: 20100512
  Transmission Date: 20101027
  Serious: Yes (Hospitalization, Other)
  Sender: FDA-Public Use
  Company Number: 1-22660592

PATIENT
  Age: 73 Year
  Sex: Male

DRUGS (12)
  1. WARFARIN SODIUM [Suspect]
     Indication: THROMBOSIS PROPHYLAXIS
     Dosage: DAILY, ORAL
     Route: 048
     Dates: start: 20091013, end: 20100102
  2. WARFARIN SODIUM [Suspect]
     Indication: THROMBOSIS PROPHYLAXIS
     Dosage: 5MG, DAILY, ORAL
     Route: 048
  3. PIRAMIL (RAMIPRIL) [Concomitant]
  4. BETALOC ZOK (METOPROLOL TARTRATE) [Concomitant]
  5. STIMULON [Concomitant]
  6. ATROX [Concomitant]
  7. FUROSEMIDE [Concomitant]
  8. APOFINE [Concomitant]
  9. LEVIRON [Concomitant]
  10. TROXERUTIN [Concomitant]
  11. CYCLORAMINE [Concomitant]
  12. AMLOZEK (AMLODIPINE BESYLATE) [Concomitant]

REACTIONS (9)
  - ASTHENIA [None]
  - CONTUSION [None]
  - EPISTAXIS [None]
  - FALL [None]
  - HAEMATOCRIT DECREASED [None]
  - HAEMOGLOBIN DECREASED [None]
  - JOINT DISLOCATION [None]
  - OVERDOSE [None]
  - PALLOR [None]
